FAERS Safety Report 24401477 (Version 1)
Quarter: 2024Q4

REPORT INFORMATION
  Report Type: Spontaneous
  Country: US (occurrence: US)
  Receive Date: 20241007
  Receipt Date: 20241007
  Transmission Date: 20250115
  Serious: Yes (Hospitalization, Other)
  Sender: IPCA
  Company Number: US-IPCA LABORATORIES LIMITED-IPC-2024-US-002325

PATIENT

DRUGS (2)
  1. RISPERIDONE [Suspect]
     Active Substance: RISPERIDONE
     Indication: Major depression
     Dosage: UNK
     Route: 065
  2. RISPERIDONE [Suspect]
     Active Substance: RISPERIDONE
     Indication: Psychotic symptom

REACTIONS (6)
  - Tardive dyskinesia [Unknown]
  - Vocal cord dysfunction [Unknown]
  - Tachypnoea [Unknown]
  - Dyspnoea [Unknown]
  - Condition aggravated [Unknown]
  - General physical health deterioration [Unknown]
